FAERS Safety Report 10242088 (Version 1)
Quarter: 2014Q2

REPORT INFORMATION
  Report Type: Spontaneous
  Country: US (occurrence: US)
  Receive Date: 20140617
  Receipt Date: 20140617
  Transmission Date: 20141212
  Serious: Yes (Death)
  Sender: FDA-Public Use
  Company Number: US-INCYTE CORPORATION-2014IN001675

PATIENT
  Age: 90 Year
  Sex: Female

DRUGS (10)
  1. JAKAFI [Suspect]
     Dosage: 5 MG, BID
     Route: 048
     Dates: start: 20140124
  2. RANITIDINE [Concomitant]
  3. METOPROLOL [Concomitant]
  4. LOSARTAN [Concomitant]
  5. LEVOTHYROXINE [Concomitant]
  6. ATORVASTATIN [Concomitant]
  7. MECLIZINE                          /00072801/ [Concomitant]
  8. ASPIRIN [Concomitant]
  9. PRESERVISION [Concomitant]
  10. MOTRIN [Concomitant]
     Dosage: UNK

REACTIONS (1)
  - Death [Fatal]
